FAERS Safety Report 9890305 (Version 1)
Quarter: 2014Q1

REPORT INFORMATION
  Report Type: Spontaneous
  Country: US (occurrence: US)
  Receive Date: 20140212
  Receipt Date: 20140212
  Transmission Date: 20141002
  Serious: Yes (Other)
  Sender: FDA-Public Use
  Company Number: US-BRISTOL-MYERS SQUIBB COMPANY-20126975

PATIENT
  Sex: Male

DRUGS (4)
  1. ABILIFY [Suspect]
  2. SEROQUEL [Suspect]
  3. KLONOPIN [Suspect]
  4. PROZAC [Suspect]

REACTIONS (10)
  - Liver disorder [Unknown]
  - Atrioventricular block [Unknown]
  - Hearing impaired [Unknown]
  - Rash [Recovered/Resolved]
  - Oral fungal infection [Unknown]
  - Inflammation [Unknown]
  - Weight increased [Unknown]
  - Swelling [Unknown]
  - Dyskinesia [Unknown]
  - Eye movement disorder [Unknown]
